FAERS Safety Report 16096721 (Version 2)
Quarter: 2025Q1

REPORT INFORMATION
  Report Type: Spontaneous
  Country: US (occurrence: US)
  Receive Date: 20190320
  Receipt Date: 20250218
  Transmission Date: 20250409
  Serious: Yes (Death, Other)
  Sender: TAKEDA
  Company Number: US-SEATTLE GENETICS-2019SGN00704

PATIENT
  Age: 53 Year
  Sex: Male

DRUGS (5)
  1. ADCETRIS [Suspect]
     Active Substance: BRENTUXIMAB VEDOTIN
     Indication: Primary effusion lymphoma
     Dosage: 1.8 MILLIGRAM/KILOGRAM, Q3WEEKS
  2. VELCADE [Suspect]
     Active Substance: BORTEZOMIB
     Indication: Primary effusion lymphoma
  3. IFOSFAMIDE [Suspect]
     Active Substance: IFOSFAMIDE
     Indication: Primary effusion lymphoma
  4. CARBOPLATIN [Suspect]
     Active Substance: CARBOPLATIN
     Indication: Primary effusion lymphoma
  5. ETOPOSIDE [Suspect]
     Active Substance: ETOPOSIDE
     Indication: Primary effusion lymphoma

REACTIONS (5)
  - Death [Fatal]
  - Lymphadenopathy [Unknown]
  - Gastric cyst [Unknown]
  - CD30 expression [Unknown]
  - Off label use [Unknown]
